FAERS Safety Report 16962272 (Version 1)
Quarter: 2019Q4

REPORT INFORMATION
  Report Type: Spontaneous
  Country: FR (occurrence: FR)
  Receive Date: 20191025
  Receipt Date: 20191025
  Transmission Date: 20200122
  Serious: Yes (Death, Hospitalization, Other)
  Sender: FDA-Public Use
  Company Number: FR-ASTRAZENECA-2019SF51624

PATIENT
  Sex: Male

DRUGS (1)
  1. IMFINZI [Suspect]
     Active Substance: DURVALUMAB
     Route: 042
     Dates: start: 20181128

REACTIONS (7)
  - Parkinson^s disease [Unknown]
  - Cardiac failure [Unknown]
  - Oedema peripheral [Unknown]
  - Hypotension [Unknown]
  - Gait disturbance [Unknown]
  - Aortic dilatation [Unknown]
  - Death [Fatal]
